FAERS Safety Report 7693895-X (Version None)
Quarter: 2011Q3

REPORT INFORMATION
  Report Type: 
  Country: None (occurrence: None)
  Receive Date: 20110819
  Receipt Date: 20110810
  Transmission Date: 20111222
  Serious: Yes (Other)
  Sender: FDA-Public Use
  Company Number: CA-US-EMD SERONO, INC.-7076435

PATIENT
  Sex: Female

DRUGS (3)
  1. LOVAZA [Concomitant]
  2. REBIF [Suspect]
     Indication: PRODUCT USED FOR UNKNOWN INDICATION
     Route: 058
     Dates: start: 20090325, end: 20100901
  3. VITAMIN D [Concomitant]

REACTIONS (1)
  - BREAST CANCER [None]
